FAERS Safety Report 8995773 (Version 1)
Quarter: 2013Q1

REPORT INFORMATION
  Report Type: Spontaneous
  Country: US (occurrence: US)
  Receive Date: 20130103
  Receipt Date: 20130103
  Transmission Date: 20140127
  Serious: No
  Sender: FDA-Public Use
  Company Number: US-ABBOTT-12P-163-0904598-00

PATIENT
  Sex: Female

DRUGS (3)
  1. SYNTHROID [Suspect]
     Indication: HYPOTHYROIDISM
     Dosage: 5D/WK(25MCG+100MCG);2D/WK(50MCG+100MCG)
     Route: 048
  2. SYNTHROID [Suspect]
     Indication: HYPOTHYROIDISM
     Dosage: 2D/WK(50MCG+100MCG);5D/WK (25MCG+100MCG)
     Route: 048
  3. SYNTHROID [Suspect]
     Indication: HYPOTHYROIDISM
     Dosage: 7D/WK;5D/WK WITH 25MCG+2D/WK WITH 50MCG
     Route: 048

REACTIONS (1)
  - Coeliac disease [Unknown]
